FAERS Safety Report 13531326 (Version 4)
Quarter: 2017Q3

REPORT INFORMATION
  Report Type: Spontaneous
  Country: US (occurrence: US)
  Receive Date: 20170510
  Receipt Date: 20170822
  Transmission Date: 20171127
  Serious: No
  Sender: FDA-Public Use
  Company Number: US-PFIZER INC-2017202344

PATIENT
  Age: 64 Year
  Sex: Male
  Weight: 83.99 kg

DRUGS (7)
  1. ASPIRIN. [Concomitant]
     Active Substance: ASPIRIN
     Indication: FAMILIAL RISK FACTOR
     Dosage: 1 DF, DAILY
     Route: 048
     Dates: start: 2015
  2. CALCIUM CARBONATE. [Concomitant]
     Active Substance: CALCIUM CARBONATE
     Indication: BONE LOSS
     Dosage: 750 MG, 3X/DAY
     Route: 048
     Dates: start: 2015
  3. PREDNISONE. [Concomitant]
     Active Substance: PREDNISONE
     Indication: INFLAMMATION
     Dosage: 5 MG, 1X/DAY
     Route: 048
     Dates: start: 2015
  4. XELJANZ XR [Suspect]
     Active Substance: TOFACITINIB CITRATE
     Indication: RHEUMATOID ARTHRITIS
     Dosage: 11 MG, 1X/DAY
  5. XELJANZ XR [Suspect]
     Active Substance: TOFACITINIB CITRATE
     Dosage: 11 MG, 1X/DAY
     Route: 048
     Dates: start: 20170101
  6. CALCIUM D3 [Concomitant]
     Active Substance: CALCIUM\CHOLECALCIFEROL
     Indication: SUPPLEMENTATION THERAPY
     Dosage: UNK
     Dates: start: 2015
  7. CALCIUM D3 [Concomitant]
     Active Substance: CALCIUM\CHOLECALCIFEROL
     Dosage: [CALCIUM CARBONATE 600MG]/[ COLECALCIFEROL 800IU], 1X/DAY
     Route: 048

REACTIONS (5)
  - Nasopharyngitis [Recovered/Resolved]
  - Pain in extremity [Recovered/Resolved]
  - Drug ineffective [Recovered/Resolved]
  - Condition aggravated [Recovered/Resolved]
  - Medication residue present [Recovered/Resolved]

NARRATIVE: CASE EVENT DATE: 20161217
